FAERS Safety Report 7049376-X (Version None)
Quarter: 2010Q4

REPORT INFORMATION
  Report Type: 
  Country: None (occurrence: None)
  Receive Date: 20101007
  Receipt Date: 20100922
  Transmission Date: 20110411
  Serious: Yes (Other)
  Sender: FDA-Public Use
  Company Number: AUR-APL-2010-02421

PATIENT
  Sex: Female

DRUGS (1)
  1. RISPERIDONE [Suspect]
     Indication: DEMENTIA ALZHEIMER'S TYPE
     Dosage: 0.25MG-ORAL
     Route: 048
     Dates: start: 20100101

REACTIONS (4)
  - ALTERED STATE OF CONSCIOUSNESS [None]
  - APHASIA [None]
  - SOMNOLENCE [None]
  - STARING [None]
